FAERS Safety Report 21847978 (Version 3)
Quarter: 2023Q1

REPORT INFORMATION
  Report Type: Report from Study
  Country: US (occurrence: US)
  Receive Date: 20230111
  Receipt Date: 20230324
  Transmission Date: 20230418
  Serious: No
  Sender: FDA-Public Use
  Company Number: US-002147023-NVSC2023US005887

PATIENT
  Sex: Female

DRUGS (3)
  1. KISQALI [Suspect]
     Active Substance: RIBOCICLIB
     Indication: Product used for unknown indication
     Dosage: UNK
     Route: 048
     Dates: start: 20230110
  2. KISQALI [Suspect]
     Active Substance: RIBOCICLIB
     Dosage: UNK,  2 CYCLIC
     Route: 048
     Dates: start: 20230110
  3. KISQALI [Suspect]
     Active Substance: RIBOCICLIB
     Dosage: UNK,  3 CYCLIC
     Route: 048

REACTIONS (4)
  - Hot flush [Unknown]
  - Nausea [Unknown]
  - Fatigue [Recovering/Resolving]
  - Pruritus [Unknown]
